FAERS Safety Report 7623387-5 (Version None)
Quarter: 2011Q3

REPORT INFORMATION
  Report Type: 
  Country: None (occurrence: None)
  Receive Date: 20110720
  Receipt Date: 20110705
  Transmission Date: 20111222
  Serious: Yes (Hospitalization)
  Sender: FDA-Public Use
  Company Number: NL-SANOFI-AVENTIS-2011SA044453

PATIENT
  Age: 87 Year
  Sex: Male
  Weight: 82 kg

DRUGS (5)
  1. PRAVASTATIN [Concomitant]
  2. BISOPROLOL [Concomitant]
  3. PHENPROCOUMON [Concomitant]
  4. FUROSEMIDE [Concomitant]
  5. DRONEDARONE HCL [Suspect]
     Indication: ATRIAL FIBRILLATION
     Route: 048
     Dates: start: 20110224

REACTIONS (1)
  - TRAUMATIC HAEMORRHAGE [None]
